FAERS Safety Report 9511144 (Version 2)
Quarter: 2014Q1

REPORT INFORMATION
  Report Type: Spontaneous
  Country: GB (occurrence: GB)
  Receive Date: 20130910
  Receipt Date: 20140129
  Transmission Date: 20141002
  Serious: Yes (Other)
  Sender: FDA-Public Use
  Company Number: GB-ACCORD-019186

PATIENT
  Age: 12 Year
  Sex: Male

DRUGS (3)
  1. SUMATRIPTAN [Concomitant]
  2. TOPIRAMATE [Suspect]
     Indication: MIGRAINE PROPHYLAXIS
     Route: 048
     Dates: start: 201303, end: 201306
  3. IBUPROFEN [Concomitant]

REACTIONS (4)
  - Tonsillitis [Recovered/Resolved with Sequelae]
  - Pyrexia [Recovered/Resolved]
  - Adenoiditis [Recovered/Resolved with Sequelae]
  - Off label use [Unknown]
